FAERS Safety Report 7094218-X (Version None)
Quarter: 2010Q4

REPORT INFORMATION
  Report Type: 
  Country: None (occurrence: None)
  Receive Date: 20101110
  Receipt Date: 20101103
  Transmission Date: 20110411
  Serious: Yes (Other)
  Sender: FDA-Public Use
  Company Number: US-SANOFI-AVENTIS-2010SA067726

PATIENT
  Age: 78 Year
  Sex: Male

DRUGS (5)
  1. PLAVIX [Suspect]
     Indication: STENT PLACEMENT
     Route: 048
     Dates: start: 20080101, end: 20101001
  2. PLAVIX [Suspect]
     Route: 048
     Dates: start: 20101001
  3. COUMADIN [Concomitant]
     Dates: start: 20080101
  4. ASPIRIN [Concomitant]
     Dates: start: 20080101
  5. LOVENOX [Concomitant]

REACTIONS (1)
  - ATRIAL FIBRILLATION [None]
